FAERS Safety Report 6379200-X (Version None)
Quarter: 2009Q3

REPORT INFORMATION
  Report Type: 
  Country: None (occurrence: None)
  Receive Date: 20090928
  Receipt Date: 20090921
  Transmission Date: 20100115
  Serious: Yes (Other)
  Sender: FDA-Public Use
  Company Number: GB-B.I. PHARMACEUTICALS,INC./RIDGEFIELD-2009-UK-00825UK

PATIENT
  Age: 30 Year
  Sex: Female

DRUGS (2)
  1. ATROVENT [Suspect]
  2. XOLAIR [Suspect]
     Dosage: 300MG 1/1 MONTHS
     Route: 058

REACTIONS (5)
  - DIZZINESS [None]
  - HYPOTENSION [None]
  - RASH [None]
  - VEIN DISORDER [None]
  - VISION BLURRED [None]
